FAERS Safety Report 15975477 (Version 2)
Quarter: 2019Q1

REPORT INFORMATION
  Report Type: Spontaneous
  Country: US (occurrence: US)
  Receive Date: 20190218
  Receipt Date: 20190305
  Transmission Date: 20190418
  Serious: Yes (Hospitalization)
  Sender: FDA-Public Use
  Company Number: US-BIOGEN-2019BI00695466

PATIENT
  Age: 39 Year
  Sex: Female

DRUGS (1)
  1. TECFIDERA [Suspect]
     Active Substance: DIMETHYL FUMARATE
     Indication: MULTIPLE SCLEROSIS
     Route: 050
     Dates: start: 20170206

REACTIONS (7)
  - Hypomania [Unknown]
  - Mental impairment [Unknown]
  - Steroid withdrawal syndrome [Unknown]
  - Multiple sclerosis relapse [Unknown]
  - Insomnia [Not Recovered/Not Resolved]
  - Flushing [Recovered/Resolved]
  - Delirium [Unknown]

NARRATIVE: CASE EVENT DATE: 201901
